FAERS Safety Report 19925322 (Version 2)
Quarter: 2022Q1

REPORT INFORMATION
  Report Type: Spontaneous
  Country: US (occurrence: US)
  Receive Date: 20211006
  Receipt Date: 20220127
  Transmission Date: 20220423
  Serious: No
  Sender: FDA-Public Use
  Company Number: US-GLENMARK PHARMACEUTICALS-2021GMK067379

PATIENT

DRUGS (2)
  1. GABAPENTIN [Interacting]
     Active Substance: GABAPENTIN
     Indication: Pain in extremity
     Dosage: 6 TABLETS A DAY, AS NEEDED (PRN) FOR PAIN
     Route: 065
  2. HYDROCODONE [Interacting]
     Active Substance: HYDROCODONE
     Indication: Back pain
     Dosage: 7.5 MILLIGRAM, QID
     Route: 048

REACTIONS (2)
  - Labelled drug-drug interaction medication error [Unknown]
  - Therapeutic product effect incomplete [Unknown]
